FAERS Safety Report 18774234 (Version 1)
Quarter: 2021Q1

REPORT INFORMATION
  Report Type: Spontaneous
  Country: US (occurrence: US)
  Receive Date: 20210121
  Receipt Date: 20210121
  Transmission Date: 20210419
  Serious: Yes (Life-Threatening, Hospitalization)
  Sender: FDA-Public Use
  Company Number: None

PATIENT
  Age: 75 Year
  Sex: Male
  Weight: 78 kg

DRUGS (1)
  1. VANCOMYCIN (VANCOMYCIN HCL 100MG/ML INJ) [Suspect]
     Active Substance: VANCOMYCIN HYDROCHLORIDE
     Indication: SURGERY
     Dates: start: 20200529, end: 20200529

REACTIONS (6)
  - Hypotension [None]
  - Tachypnoea [None]
  - Respiratory depression [None]
  - Anaphylactic reaction [None]
  - Tachycardia [None]
  - Rash [None]

NARRATIVE: CASE EVENT DATE: 20200529
